FAERS Safety Report 10236647 (Version 1)
Quarter: 2014Q2

REPORT INFORMATION
  Report Type: Spontaneous
  Country: US (occurrence: US)
  Receive Date: 20140613
  Receipt Date: 20140613
  Transmission Date: 20141212
  Serious: Yes (Death)
  Sender: FDA-Public Use
  Company Number: US-PFIZER INC-2014159566

PATIENT
  Age: 77 Year
  Sex: Male

DRUGS (1)
  1. SUTENT [Suspect]
     Indication: CARCINOID SYNDROME
     Dosage: 50 MG, DAILY
     Dates: start: 20140411

REACTIONS (1)
  - Parkinson^s disease [Fatal]
